FAERS Safety Report 5063821-0 (Version None)
Quarter: 2006Q3

REPORT INFORMATION
  Report Type: 
  Country: None (occurrence: None)
  Receive Date: 20060726
  Receipt Date: 20060726
  Transmission Date: 20061208
  Serious: Yes (Other)
  Sender: FDA-Public Use
  Company Number: None

PATIENT
  Sex: Female
  Weight: 55.3388 kg

DRUGS (7)
  1. RITUXIMAB [Suspect]
     Indication: URTICARIA CHRONIC
     Dosage: 1000 MG IV DAYS 1 AND 15
     Route: 042
     Dates: start: 20060418
  2. RITUXIMAB [Suspect]
     Indication: URTICARIA CHRONIC
     Dosage: 1000 MG IV DAYS 1 AND 15
     Route: 042
     Dates: start: 20060502
  3. PREDNISONE [Concomitant]
  4. ZYRTEC [Concomitant]
  5. SINGULAIR [Concomitant]
  6. RANITIDINE [Concomitant]
  7. HYDROXYZINE [Concomitant]

REACTIONS (1)
  - PAPILLARY THYROID CANCER [None]
